FAERS Safety Report 21464945 (Version 1)
Quarter: 2022Q4

REPORT INFORMATION
  Report Type: Spontaneous
  Country: US (occurrence: US)
  Receive Date: 20221017
  Receipt Date: 20221017
  Transmission Date: 20230113
  Serious: No
  Sender: FDA-Public Use
  Company Number: US-BRISTOL-MYERS SQUIBB COMPANY-2022-121518

PATIENT
  Age: 78 Year
  Sex: Male
  Weight: 108.86 kg

DRUGS (1)
  1. POMALYST [Suspect]
     Active Substance: POMALIDOMIDE
     Indication: Plasma cell myeloma refractory
     Dosage: DAILY ON DAYS 1-21 EVERY 28 DAYS
     Route: 048
     Dates: start: 20220919, end: 20221004

REACTIONS (2)
  - White blood cell count decreased [Unknown]
  - Plasma cell count [Unknown]

NARRATIVE: CASE EVENT DATE: 20221004
